FAERS Safety Report 24027900 (Version 1)
Quarter: 2024Q2

REPORT INFORMATION
  Report Type: Spontaneous
  Country: US (occurrence: US)
  Receive Date: 20240628
  Receipt Date: 20240628
  Transmission Date: 20240716
  Serious: No
  Sender: FDA-Public Use
  Company Number: US-PADAGIS-2024PAD01067

PATIENT

DRUGS (7)
  1. CLOBETASOL PROPIONATE [Suspect]
     Active Substance: CLOBETASOL PROPIONATE
     Indication: Palmoplantar keratoderma
     Dosage: UNK
     Route: 061
  2. TAZAROTENE [Suspect]
     Active Substance: TAZAROTENE
     Indication: Palmoplantar keratoderma
     Dosage: UNK
     Route: 061
  3. BETAMETHASONE DIPROPIONATE [Suspect]
     Active Substance: BETAMETHASONE DIPROPIONATE
     Indication: Palmoplantar keratoderma
     Dosage: UNK
     Route: 061
  4. ALUMINUM CHLORIDE [Suspect]
     Active Substance: ALUMINUM CHLORIDE
     Indication: Palmoplantar keratoderma
     Dosage: UNK
     Route: 061
  5. UREA [Suspect]
     Active Substance: UREA
     Indication: Palmoplantar keratoderma
     Dosage: UNK
     Route: 061
  6. SALICYLIC ACID [Suspect]
     Active Substance: SALICYLIC ACID
     Indication: Palmoplantar keratoderma
     Dosage: UNK
     Route: 061
  7. CALCIPOTRIENE [Suspect]
     Active Substance: CALCIPOTRIENE
     Indication: Palmoplantar keratoderma
     Dosage: UNK
     Route: 061

REACTIONS (2)
  - Treatment failure [Unknown]
  - Product use in unapproved indication [Unknown]
